FAERS Safety Report 13191851 (Version 1)
Quarter: 2017Q1

REPORT INFORMATION
  Report Type: Spontaneous
  Country: RU (occurrence: RU)
  Receive Date: 20170207
  Receipt Date: 20170207
  Transmission Date: 20170428
  Serious: Yes (Other)
  Sender: FDA-Public Use
  Company Number: RU-ROCHE-1890370

PATIENT
  Sex: Female

DRUGS (1)
  1. PEGASYS [Suspect]
     Active Substance: PEGINTERFERON ALFA-2A
     Indication: LEUKAEMIA
     Dosage: 32 WEEKS
     Route: 058

REACTIONS (2)
  - Lymphadenopathy [Not Recovered/Not Resolved]
  - Off label use [Unknown]
